FAERS Safety Report 5278064-5 (Version None)
Quarter: 2007Q1

REPORT INFORMATION
  Report Type: 
  Country: None (occurrence: None)
  Receive Date: 20070321
  Receipt Date: 20070309
  Transmission Date: 20070707
  Serious: Yes (Disabling, Other)
  Sender: FDA-Public Use
  Company Number: 2007RR-06257

PATIENT
  Age: 25 Year
  Sex: Male
  Weight: 72 kg

DRUGS (2)
  1. ACYCLOVIR [Suspect]
     Indication: POST HERPETIC NEURALGIA
     Dosage: 10 MG, QD, ORAL
     Route: 048
     Dates: start: 20061123, end: 20061207
  2. AMITRIPTYLINE HCL [Suspect]
     Indication: HERPES ZOSTER
     Dosage: 800 MBQ, 5/1 DAYS, ORAL
     Route: 048
     Dates: start: 20061113, end: 20061122

REACTIONS (1)
  - DEAFNESS [None]
